FAERS Safety Report 9224319 (Version 1)
Quarter: 2013Q2

REPORT INFORMATION
  Report Type: Spontaneous
  Country: US (occurrence: US)
  Receive Date: 20130411
  Receipt Date: 20130411
  Transmission Date: 20140414
  Serious: Yes (Hospitalization)
  Sender: FDA-Public Use
  Company Number: US-AMGEN-USASP2013024020

PATIENT
  Age: 58 Year
  Sex: Female

DRUGS (3)
  1. DENOSUMAB [Suspect]
     Indication: OSTEOPOROSIS POSTMENOPAUSAL
     Dosage: 60 MG, Q6MO
  2. CALCIUM [Concomitant]
     Dosage: UNK UNK, QMO
  3. VITAMIN D /00107901/ [Concomitant]
     Dosage: 50000 UNIT, QMO

REACTIONS (8)
  - Hypocalcaemia [Unknown]
  - Tetany [Unknown]
  - Blood phosphorus decreased [Recovered/Resolved]
  - Blood bicarbonate decreased [Recovered/Resolved]
  - Blood magnesium decreased [Recovered/Resolved]
  - Blood parathyroid hormone increased [Recovered/Resolved]
  - Hungry bone syndrome [Unknown]
  - Blood alkaline phosphatase increased [Recovered/Resolved]
